FAERS Safety Report 5811335-X (Version None)
Quarter: 2008Q3

REPORT INFORMATION
  Report Type: 
  Country: None (occurrence: None)
  Receive Date: 20080710
  Receipt Date: 20080625
  Transmission Date: 20090109
  Serious: Yes (Other)
  Sender: FDA-Public Use
  Company Number: 2008US001680

PATIENT
  Age: 37 Year
  Sex: Female

DRUGS (3)
  1. PROGRAF [Suspect]
     Indication: ORGAN TRANSPLANT
     Dosage: 6 MG, UID/QD, ORAL
     Route: 048
  2. MYCOPHENOLATE MOFETIL [Concomitant]
  3. PREDNISOLONE [Concomitant]

REACTIONS (2)
  - RENAL DISORDER [None]
  - TRANSPLANT REJECTION [None]
